FAERS Safety Report 5720074-5 (Version None)
Quarter: 2008Q2

REPORT INFORMATION
  Report Type: 
  Country: None (occurrence: None)
  Receive Date: 20080428
  Receipt Date: 20080423
  Transmission Date: 20081010
  Serious: Yes (Death)
  Sender: FDA-Public Use
  Company Number: GR-SANOFI-SYNTHELABO-A01200803738

PATIENT
  Age: 69 Year
  Sex: Male

DRUGS (3)
  1. ERBITUX [Suspect]
     Indication: COLON CANCER STAGE IV
     Dosage: 15 DAY CYCLE
     Route: 041
     Dates: start: 20080324, end: 20080324
  2. CAMPTOSAR [Suspect]
     Indication: COLON CANCER STAGE IV
     Dosage: 15 DAY CYCLE
     Route: 041
     Dates: start: 20080324, end: 20080324
  3. ELOXATIN [Suspect]
     Indication: COLON CANCER STAGE IV
     Dosage: 15 DAY CYCLE
     Route: 041
     Dates: start: 20080324, end: 20080324

REACTIONS (1)
  - CARDIAC ARREST [None]
